FAERS Safety Report 5797173-5 (Version None)
Quarter: 2008Q2

REPORT INFORMATION
  Report Type: 
  Country: None (occurrence: None)
  Receive Date: 20080627
  Receipt Date: 20080612
  Transmission Date: 20081010
  Serious: Yes (Life-Threatening, Hospitalization)
  Sender: FDA-Public Use
  Company Number: DSA_32046_2008

PATIENT
  Sex: Female

DRUGS (2)
  1. MONO-TILDIEM       (MONO-TILDIEM - DILTIAZEM HYDROCHLORIDE) [Suspect]
     Indication: DRUG USE FOR UNKNOWN INDICATION
     Dosage: (60 MG TID ORAL)
     Route: 048
     Dates: start: 20080502, end: 20080519
  2. CORDARONE [Concomitant]

REACTIONS (2)
  - ACUTE GENERALISED EXANTHEMATOUS PUSTULOSIS [None]
  - SKIN EXFOLIATION [None]
